FAERS Safety Report 8761545 (Version 2)
Quarter: 2013Q4

REPORT INFORMATION
  Report Type: Spontaneous
  Country: US (occurrence: US)
  Receive Date: 20120830
  Receipt Date: 20131101
  Transmission Date: 20140711
  Serious: Yes (Other)
  Sender: FDA-Public Use
  Company Number: US-009507513-1208USA011099

PATIENT
  Age: 70 Year
  Sex: Male

DRUGS (3)
  1. JANUVIA [Suspect]
     Indication: TYPE 2 DIABETES MELLITUS
     Dosage: 100 MG, QD
     Route: 048
     Dates: start: 201108
  2. LISINOPRIL [Concomitant]
  3. TOPROL XL TABLETS [Concomitant]

REACTIONS (1)
  - Pancreatitis acute [Recovering/Resolving]
